FAERS Safety Report 9695364 (Version 1)
Quarter: 2013Q4

REPORT INFORMATION
  Report Type: Spontaneous
  Country: US (occurrence: None)
  Receive Date: 20131118
  Receipt Date: 20131118
  Transmission Date: 20140711
  Serious: Yes (Other)
  Sender: FDA-Public Use
  Company Number: None

PATIENT
  Age: 63 Year
  Sex: Male

DRUGS (4)
  1. ZELBORAF [Suspect]
     Indication: MALIGNANT MELANOMA
     Route: 048
     Dates: start: 20131005, end: 20131014
  2. FUROSEMIDE [Concomitant]
  3. PROCHLORPERAZINE [Concomitant]
  4. AMPICILLIN [Concomitant]

REACTIONS (2)
  - Rash [None]
  - Pain [None]
